FAERS Safety Report 4596158-4 (Version None)
Quarter: 2005Q1

REPORT INFORMATION
  Report Type: 
  Country: None (occurrence: None)
  Receive Date: 20050302
  Receipt Date: 20050221
  Transmission Date: 20050727
  Serious: Yes (Other)
  Sender: FDA-Public Use
  Company Number: GB-ROCHE-396249

PATIENT
  Age: 87 Year
  Sex: Female
  Weight: 65.6 kg

DRUGS (10)
  1. TAMIFLU [Suspect]
     Indication: INFLUENZA
     Route: 048
     Dates: start: 20050126, end: 20050204
  2. FUROSEMIDE [Concomitant]
  3. LACTULOSE [Concomitant]
  4. LANSOPRAZOLE [Concomitant]
  5. AMILORIDE [Concomitant]
  6. CALCICHEW D3 [Concomitant]
  7. CLOTRIMAZOLE [Concomitant]
     Route: 061
  8. PERSANTINE [Concomitant]
  9. TRAXAM [Concomitant]
     Route: 061
  10. FERROUS GLUCONATE [Concomitant]

REACTIONS (6)
  - CHROMATURIA [None]
  - DECREASED APPETITE [None]
  - FEELING ABNORMAL [None]
  - HAEMATURIA [None]
  - PROTEINURIA [None]
  - URINE ODOUR ABNORMAL [None]
